FAERS Safety Report 4659036-8 (Version None)
Quarter: 2005Q2

REPORT INFORMATION
  Report Type: 
  Country: None (occurrence: None)
  Receive Date: 20050509
  Receipt Date: 20050502
  Transmission Date: 20051028
  Serious: No
  Sender: FDA-Public Use
  Company Number: 200513604GDDC

PATIENT
  Age: 32 Year
  Sex: Female

DRUGS (3)
  1. ARAVA [Suspect]
     Indication: POLYARTHRITIS
     Dosage: 20 MG QD PO
     Route: 048
     Dates: start: 20050101, end: 20050301
  2. KETOPROFEN [Concomitant]
  3. PARACETAMOL, DEXTROPROPOXYPHENE HYDROCHLORIDE (DI-ANTALVIC) [Concomitant]

REACTIONS (1)
  - TRANSAMINASES INCREASED [None]
